FAERS Safety Report 6617457-8 (Version None)
Quarter: 2010Q1

REPORT INFORMATION
  Report Type: 
  Country: None (occurrence: None)
  Receive Date: 20100308
  Receipt Date: 20100202
  Transmission Date: 20100710
  Serious: Yes (Hospitalization)
  Sender: FDA-Public Use
  Company Number: JP-JNJFOC-20100203950

PATIENT
  Age: 25 Year
  Sex: Male

DRUGS (6)
  1. ITRIZOLE [Suspect]
     Indication: PROPHYLAXIS
     Route: 048
  2. PREDNISOLONE [Suspect]
     Indication: DRUG USE FOR UNKNOWN INDICATION
     Route: 048
  3. ONCOVIN [Concomitant]
     Route: 042
  4. DEXAMETHASONE [Concomitant]
     Route: 065
  5. DEXAMETHASONE [Concomitant]
     Route: 065
  6. DEXAMETHASONE [Concomitant]
     Route: 065

REACTIONS (1)
  - MUSCULAR WEAKNESS [None]
